FAERS Safety Report 8772829 (Version 1)
Quarter: 2012Q4

REPORT INFORMATION
  Report Type: 
  Country: JP (occurrence: JP)
  Receive Date: 20120907
  Receipt Date: 20120907
  Transmission Date: 20130627
  Serious: Yes (Hospitalization)
  Sender: FDA-Public Use
  Company Number: JP-PFIZER INC-2012217586

PATIENT
  Sex: Female

DRUGS (8)
  1. VANCOMYCIN HCL [Suspect]
     Dosage: 2000 mg, daily
     Route: 042
     Dates: start: 20120630, end: 20120703
  2. LYRICA [Suspect]
     Dosage: UNK
     Route: 048
  3. ROCEPHIN [Suspect]
     Dosage: 4000 mg, daily
     Route: 042
     Dates: start: 20120630, end: 20120703
  4. ACYCLOVIR [Suspect]
     Indication: MENINGITIS VIRAL
     Dosage: 1500 mg, daily
     Route: 042
     Dates: start: 20120630, end: 20120703
  5. VICCILLIN [Suspect]
     Dosage: 2000 mg, daily
     Route: 042
     Dates: start: 20120630, end: 20120703
  6. ASPIRIN [Suspect]
     Indication: DIABETES MELLITUS
     Dosage: UNK
     Route: 048
  7. UNSPECIFIED INGREDIENT [Suspect]
     Indication: DYSLIPIDAEMIA
     Dosage: UNK
     Route: 048
  8. LOXONIN [Suspect]
     Dosage: UNK
     Route: 065

REACTIONS (8)
  - Altered state of consciousness [Recovered/Resolved]
  - Renal failure acute [Unknown]
  - Depressed level of consciousness [Recovered/Resolved]
  - Logorrhoea [Unknown]
  - Blood urea increased [Unknown]
  - Blood creatinine increased [Unknown]
  - Blood calcium decreased [Unknown]
  - Restlessness [Unknown]
